FAERS Safety Report 10553493 (Version 1)
Quarter: 2014Q4

REPORT INFORMATION
  Report Type: Spontaneous
  Country: NL (occurrence: None)
  Receive Date: 20141028
  Receipt Date: 20141028
  Transmission Date: 20150529
  Serious: Yes (Life-Threatening)
  Sender: FDA-Public Use
  Company Number: SP08448

PATIENT
  Age: 60 Year
  Sex: Male

DRUGS (17)
  1. OCTREOTIDE [Concomitant]
     Active Substance: OCTREOTIDE
  2. TAMSULOSIN [Concomitant]
     Active Substance: TAMSULOSIN
  3. FUROSEMIDE. [Concomitant]
     Active Substance: FUROSEMIDE
  4. UREA. [Concomitant]
     Active Substance: UREA
  5. OXYCODONE [Concomitant]
     Active Substance: OXYCODONE
  6. XIFAXAN [Suspect]
     Active Substance: RIFAXIMIN
     Indication: HEPATIC ENCEPHALOPATHY
     Dosage: 1100 MG (550 MG, 2 IN 1 D)
     Route: 048
     Dates: start: 20140424, end: 20140921
  7. VITAMIN K [Concomitant]
     Active Substance: PHYTONADIONE
  8. DESLORATADINE. [Concomitant]
     Active Substance: DESLORATADINE
  9. METHADONE [Concomitant]
     Active Substance: METHADONE HYDROCHLORIDE
  10. NALTREXONE [Concomitant]
     Active Substance: NALTREXONE
  11. NORFLOXIN [Concomitant]
  12. PROPRANOLOL [Concomitant]
     Active Substance: PROPRANOLOL\PROPRANOLOL HYDROCHLORIDE
  13. MEROPENEM. [Concomitant]
     Active Substance: MEROPENEM
  14. TEMAZEPAM. [Concomitant]
     Active Substance: TEMAZEPAM
  15. NYSTATIN. [Concomitant]
     Active Substance: NYSTATIN
  16. MIDODRINE [Concomitant]
     Active Substance: MIDODRINE
  17. SULFADIAZINE. [Concomitant]
     Active Substance: SULFADIAZINE

REACTIONS (2)
  - Dermatitis exfoliative [None]
  - Skin necrosis [None]

NARRATIVE: CASE EVENT DATE: 20140921
